FAERS Safety Report 8584154-1 (Version None)
Quarter: 2012Q3

REPORT INFORMATION
  Report Type: 
  Country: None (occurrence: None)
  Receive Date: 20120810
  Receipt Date: 20120801
  Transmission Date: 20120928
  Serious: Yes (Other)
  Sender: FDA-Public Use
  Company Number: TR-AMGEN-TURSP2012047647

PATIENT
  Age: 42 Year
  Sex: Male
  Weight: 52 kg

DRUGS (3)
  1. MELOXICAM [Concomitant]
     Dosage: AS NEEDED
  2. ENBREL [Suspect]
     Indication: ANKYLOSING SPONDYLITIS
     Dosage: 25 MG, 2X/WEEK
     Route: 058
     Dates: start: 20120101, end: 20120701
  3. ENBREL [Suspect]
     Dosage: 50 MG, WEEKLY

REACTIONS (6)
  - MOUTH HAEMORRHAGE [None]
  - RECTAL HAEMORRHAGE [None]
  - BLOOD TEST ABNORMAL [None]
  - WEIGHT DECREASED [None]
  - THROMBOCYTOPENIA [None]
  - PLATELET COUNT INCREASED [None]
